FAERS Safety Report 5056007-7 (Version None)
Quarter: 2006Q3

REPORT INFORMATION
  Report Type: 
  Country: None (occurrence: None)
  Receive Date: 20060720
  Receipt Date: 20060717
  Transmission Date: 20061208
  Serious: Yes (Hospitalization)
  Sender: FDA-Public Use
  Company Number: 2006CG01235

PATIENT
  Age: 25 Year
  Sex: Female

DRUGS (5)
  1. OMEPRAZOLE [Suspect]
     Route: 048
  2. ASPIRIN [Suspect]
     Route: 048
  3. VASTEN [Suspect]
     Route: 048
  4. PROGRAF [Suspect]
     Route: 048
     Dates: start: 20020401
  5. CELLCEPT [Suspect]
     Route: 048
     Dates: start: 20020401

REACTIONS (1)
  - DIABETES MELLITUS INSULIN-DEPENDENT [None]
